FAERS Safety Report 22747788 (Version 2)
Quarter: 2024Q1

REPORT INFORMATION
  Report Type: Spontaneous
  Country: US (occurrence: US)
  Receive Date: 20230725
  Receipt Date: 20240216
  Transmission Date: 20240409
  Serious: Yes (Disabling, Other)
  Sender: FDA-Public Use
  Company Number: US-ABBVIE-5338875

PATIENT
  Sex: Female

DRUGS (1)
  1. BOTOX [Suspect]
     Active Substance: ONABOTULINUMTOXINA
     Indication: Migraine
     Dosage: TIME INTERVAL: AS NECESSARY
     Route: 065
     Dates: start: 2019, end: 2019

REACTIONS (14)
  - Neuralgia [Not Recovered/Not Resolved]
  - Pain [Recovering/Resolving]
  - Dizziness [Unknown]
  - Chest pain [Recovering/Resolving]
  - Electrocardiogram abnormal [Unknown]
  - Maternal exposure during pregnancy [Unknown]
  - Fatigue [Not Recovered/Not Resolved]
  - Abdominal pain [Unknown]
  - Immune system disorder [Unknown]
  - Adnexa uteri pain [Unknown]
  - Bone pain [Recovering/Resolving]
  - Hepatic enzyme increased [Unknown]
  - Hepatomegaly [Unknown]
  - Weight loss poor [Unknown]

NARRATIVE: CASE EVENT DATE: 20210915
